FAERS Safety Report 9343809 (Version 1)
Quarter: 2013Q2

REPORT INFORMATION
  Report Type: Spontaneous
  Country: US (occurrence: US)
  Receive Date: 20130612
  Receipt Date: 20130612
  Transmission Date: 20140414
  Serious: No
  Sender: FDA-Public Use
  Company Number: US-JNJFOC-20130508237

PATIENT
  Sex: Female
  Weight: 113.4 kg

DRUGS (6)
  1. INVEGA [Suspect]
     Indication: SCHIZOPHRENIA
     Route: 048
  2. DOXEPIN [Concomitant]
     Indication: SLEEP DISORDER
     Route: 065
  3. BENZTROPINE [Concomitant]
     Indication: FEELING JITTERY
     Route: 065
  4. LISINOPRIL [Concomitant]
     Indication: HYPERTENSION
     Route: 065
     Dates: end: 2013
  5. FUROSEMIDE [Concomitant]
     Indication: DIURETIC THERAPY
     Route: 065
     Dates: end: 2012
  6. TYLENOL [Concomitant]
     Route: 065

REACTIONS (3)
  - Drug dose omission [Recovered/Resolved]
  - Product packaging issue [Unknown]
  - Drug dispensing error [Unknown]
